FAERS Safety Report 7407812-0 (Version None)
Quarter: 2011Q2

REPORT INFORMATION
  Report Type: 
  Country: None (occurrence: None)
  Receive Date: 20110412
  Receipt Date: 20110406
  Transmission Date: 20111010
  Serious: Yes (Other)
  Sender: FDA-Public Use
  Company Number: PHHY2011CA26596

PATIENT
  Sex: Male

DRUGS (5)
  1. CRESTOR [Concomitant]
     Dosage: UNK
     Dates: start: 20091101
  2. METFORMIN HCL [Concomitant]
     Dosage: UNK
     Dates: start: 20081101
  3. HUMALOG [Concomitant]
     Dosage: UNK
     Dates: start: 20091125
  4. ALTACE [Concomitant]
     Dosage: UNK
     Dates: start: 20091101
  5. ALISKIREN [Suspect]
     Indication: HYPERTENSION
     Dosage: 300 MG, UNK
     Route: 048
     Dates: start: 20090808

REACTIONS (1)
  - URINE PROTEIN/CREATININE RATIO INCREASED [None]
